FAERS Safety Report 8361278-5 (Version None)
Quarter: 2012Q2

REPORT INFORMATION
  Report Type: 
  Country: None (occurrence: None)
  Receive Date: 20120515
  Receipt Date: 20120507
  Transmission Date: 20120825
  Serious: Yes (Hospitalization, Other)
  Sender: FDA-Public Use
  Company Number: US-MERCK-1112USA01243

PATIENT
  Age: 60 Year
  Sex: Female
  Weight: 65 kg

DRUGS (6)
  1. ALENDRONATE SODIUM [Suspect]
     Indication: OSTEOPENIA
     Route: 048
     Dates: start: 20080612, end: 20100101
  2. FOSAMAX [Suspect]
     Indication: OSTEOPOROSIS
     Route: 048
     Dates: start: 20010621, end: 20100301
  3. FOSAMAX [Suspect]
     Indication: OSTEOPENIA
     Route: 048
     Dates: start: 20010621, end: 20100301
  4. FOSAMAX [Suspect]
     Route: 048
  5. ALENDRONATE SODIUM [Suspect]
     Indication: OSTEOPOROSIS
     Route: 048
     Dates: start: 20080612, end: 20100101
  6. FOSAMAX [Suspect]
     Route: 048

REACTIONS (24)
  - STRESS [None]
  - PLANTAR FASCIITIS [None]
  - DEAFNESS NEUROSENSORY [None]
  - HAEMORRHOIDS [None]
  - OVERDOSE [None]
  - BLOOD TRIGLYCERIDES INCREASED [None]
  - MUSCLE STRAIN [None]
  - TONGUE NEOPLASM BENIGN [None]
  - RHINITIS ALLERGIC [None]
  - PSORIASIS [None]
  - LIMB INJURY [None]
  - TOOTH DISORDER [None]
  - BLOOD CHOLESTEROL INCREASED [None]
  - FEMUR FRACTURE [None]
  - ALLERGY TO ARTHROPOD BITE [None]
  - DEPRESSION [None]
  - CHEST PAIN [None]
  - ANXIETY DISORDER [None]
  - IRRITABLE BOWEL SYNDROME [None]
  - GASTRITIS [None]
  - BURSITIS [None]
  - DIARRHOEA [None]
  - MIGRAINE [None]
  - LABYRINTHITIS [None]
